FAERS Safety Report 8379875-X (Version None)
Quarter: 2012Q2

REPORT INFORMATION
  Report Type: 
  Country: None (occurrence: None)
  Receive Date: 20120523
  Receipt Date: 20120518
  Transmission Date: 20120825
  Serious: Yes (Other)
  Sender: FDA-Public Use
  Company Number: JP-PFIZER INC-2012120556

PATIENT
  Age: 60 Year
  Sex: Male

DRUGS (4)
  1. DIGOXIN [Suspect]
     Dosage: UNK
  2. METHOTREXATE [Concomitant]
     Dosage: UNK
  3. WARFARIN SODIUM [Suspect]
     Indication: ATRIAL FIBRILLATION
     Dosage: UNK
     Route: 048
  4. NORVASC [Suspect]
     Dosage: UNK
     Route: 048

REACTIONS (1)
  - ARTHRITIS [None]
